FAERS Safety Report 9949095 (Version 2)
Quarter: 2014Q2

REPORT INFORMATION
  Report Type: Report from Study
  Country: DE (occurrence: DE)
  Receive Date: 20140304
  Receipt Date: 20140627
  Transmission Date: 20141212
  Serious: Yes (Other)
  Sender: FDA-Public Use
  Company Number: DE-ROCHE-1353008

PATIENT
  Sex: 0

DRUGS (1)
  1. BEVACIZUMAB [Suspect]
     Indication: GLIOMA
     Dosage: DAY 1 AND DAY 15
     Route: 065

REACTIONS (6)
  - Thrombocytopenia [Unknown]
  - Impaired healing [Unknown]
  - Deep vein thrombosis [Unknown]
  - Leukoencephalopathy [Unknown]
  - Fatigue [Unknown]
  - Hypertension [Unknown]
